FAERS Safety Report 6928207-X (Version None)
Quarter: 2010Q3

REPORT INFORMATION
  Report Type: 
  Country: None (occurrence: None)
  Receive Date: 20100817
  Receipt Date: 20100813
  Transmission Date: 20110219
  Serious: Yes (Death)
  Sender: FDA-Public Use
  Company Number: GB-TEVA-237350ISR

PATIENT
  Age: 67 Year
  Sex: Female
  Weight: 66.3 kg

DRUGS (3)
  1. AMITRIPTYLINE HYDROCHLORIDE [Suspect]
     Indication: DEPRESSION
     Dates: start: 20010112, end: 20090313
  2. FENTANYL CITRATE [Interacting]
     Indication: PAIN
     Dosage: 100 UG/HR
     Route: 061
     Dates: start: 20070305
  3. FENTANYL CITRATE [Interacting]
     Indication: SPONDYLITIS
     Dosage: 100 UG/HR
     Route: 061
     Dates: start: 20080101

REACTIONS (5)
  - DRUG ADMINISTRATION ERROR [None]
  - DRUG TOXICITY [None]
  - MYOCARDIAL ISCHAEMIA [None]
  - PRODUCT QUALITY ISSUE [None]
  - WRONG TECHNIQUE IN DRUG USAGE PROCESS [None]
